FAERS Safety Report 24028968 (Version 3)
Quarter: 2025Q4

REPORT INFORMATION
  Report Type: Spontaneous
  Country: US (occurrence: US)
  Receive Date: 20240628
  Receipt Date: 20251217
  Transmission Date: 20260118
  Serious: No
  Sender: VERTEX
  Company Number: US-VERTEX PHARMACEUTICALS-2024-010360

PATIENT

DRUGS (2)
  1. TRIKAFTA [Suspect]
     Active Substance: ELEXACAFTOR\IVACAFTOR\TEZACAFTOR
     Indication: Cystic fibrosis
     Dosage: UNK FREQ
     Route: 061
  2. DORNASE ALFA [Concomitant]
     Active Substance: DORNASE ALFA
     Dosage: STOPPED AFTER TAKING TRIKAFTA

REACTIONS (2)
  - Blood bilirubin unconjugated increased [Unknown]
  - Decreased appetite [Unknown]
